FAERS Safety Report 12552328 (Version 1)
Quarter: 2016Q3

REPORT INFORMATION
  Report Type: Spontaneous
  Country: US (occurrence: None)
  Receive Date: 20160712
  Receipt Date: 20160712
  Transmission Date: 20161109
  Serious: No
  Sender: FDA-Public Use
  Company Number: None

PATIENT
  Sex: Female

DRUGS (1)
  1. ENBREL [Suspect]
     Active Substance: ETANERCEPT
     Indication: RHEUMATOID ARTHRITIS
     Dosage: 50MG/ML 4/PK QW SQ
     Route: 058
     Dates: start: 20160321

REACTIONS (6)
  - Drug eruption [None]
  - Gait disturbance [None]
  - Dyspnoea [None]
  - Balance disorder [None]
  - Asthenia [None]
  - Pyrexia [None]
